FAERS Safety Report 9137783 (Version 1)
Quarter: 2013Q1

REPORT INFORMATION
  Report Type: Spontaneous
  Country: IT (occurrence: IT)
  Receive Date: 20130304
  Receipt Date: 20130304
  Transmission Date: 20140127
  Serious: Yes (Other)
  Sender: FDA-Public Use
  Company Number: IT-ASTRAZENECA-2013SE12499

PATIENT
  Age: 25337 Day
  Sex: Male

DRUGS (1)
  1. ATENOLOL [Suspect]
     Route: 048
     Dates: start: 20120128, end: 20130127

REACTIONS (2)
  - Sinus bradycardia [Recovering/Resolving]
  - Presyncope [Recovering/Resolving]
